FAERS Safety Report 14915654 (Version 1)
Quarter: 2018Q2

REPORT INFORMATION
  Report Type: Spontaneous
  Country: US (occurrence: US)
  Receive Date: 20180501
  Receipt Date: 20180501
  Transmission Date: 20180711
  Serious: Yes (Hospitalization)
  Sender: FDA-Public Use
  Company Number: None

PATIENT
  Age: 71 Year
  Sex: Female
  Weight: 66.6 kg

DRUGS (4)
  1. BABY ASPIRIN [Concomitant]
     Active Substance: ASPIRIN
  2. AZITHROMYACIN [Suspect]
     Active Substance: AZITHROMYCIN
     Indication: SINUSITIS
     Dosage: ?          QUANTITY:5 TABLET(S);?
     Route: 048
     Dates: start: 20160721, end: 20160725
  3. WOMENS MULTI VITAMIN [Concomitant]
  4. VITAMIN C [Concomitant]
     Active Substance: ASCORBIC ACID

REACTIONS (3)
  - Atrial fibrillation [None]
  - Drug intolerance [None]
  - Cardiac disorder [None]

NARRATIVE: CASE EVENT DATE: 20160901
